FAERS Safety Report 11494805 (Version 1)
Quarter: 2015Q3

REPORT INFORMATION
  Report Type: Spontaneous
  Country: US (occurrence: US)
  Receive Date: 20150911
  Receipt Date: 20150911
  Transmission Date: 20151125
  Serious: No
  Sender: FDA-Public Use
  Company Number: US-ROCHE-1011435

PATIENT
  Sex: Male
  Weight: 64.47 kg

DRUGS (2)
  1. RIBASPHERE [Suspect]
     Active Substance: RIBAVIRIN
     Indication: CHRONIC HEPATITIS C
     Dosage: DIVIDED DOSES
     Route: 048
     Dates: start: 20111007
  2. PEGASYS [Suspect]
     Active Substance: PEGINTERFERON ALFA-2A
     Indication: CHRONIC HEPATITIS C
     Route: 058
     Dates: start: 20111007

REACTIONS (9)
  - Influenza like illness [Unknown]
  - Blood blister [Recovered/Resolved]
  - Asthenia [Unknown]
  - Respiratory tract congestion [Unknown]
  - Pain [Unknown]
  - Wheezing [Unknown]
  - Weight decreased [Unknown]
  - Jaundice [Unknown]
  - Nasal congestion [Unknown]
